FAERS Safety Report 17913786 (Version 1)
Quarter: 2020Q2

REPORT INFORMATION
  Report Type: Spontaneous
  Country: IT (occurrence: IT)
  Receive Date: 20200618
  Receipt Date: 20200618
  Transmission Date: 20200714
  Serious: Yes (Hospitalization)
  Sender: FDA-Public Use
  Company Number: IT-JNJFOC-20200617743

PATIENT
  Age: 61 Year
  Sex: Male

DRUGS (2)
  1. IBUPROFEN. [Suspect]
     Active Substance: IBUPROFEN
     Indication: IMMUNOSUPPRESSION
     Route: 065
     Dates: start: 2017
  2. COLCHICINE. [Suspect]
     Active Substance: COLCHICINE
     Indication: IMMUNOSUPPRESSION
     Route: 065
     Dates: start: 2017

REACTIONS (4)
  - Infective pericardial effusion [Recovered/Resolved]
  - Product use in unapproved indication [Recovered/Resolved]
  - Off label use [Recovered/Resolved]
  - Infectious pleural effusion [Recovered/Resolved]

NARRATIVE: CASE EVENT DATE: 2017
